FAERS Safety Report 16489413 (Version 1)
Quarter: 2019Q3

REPORT INFORMATION
  Report Type: Spontaneous
  Country: US (occurrence: US)
  Receive Date: 20190627
  Receipt Date: 20190627
  Transmission Date: 20191004
  Serious: Yes (Hospitalization)
  Sender: FDA-Public Use
  Company Number: None

PATIENT
  Age: 79 Year
  Sex: Male

DRUGS (8)
  1. DOXAZOSN 4MG TAB [Concomitant]
  2. FINASTERIDE 5MG TAB [Concomitant]
  3. METOPROLOL TARTRATE 50MG TAB [Concomitant]
  4. MULTIVITAMIN TABS [Concomitant]
  5. PREDNISONE 10MG TAB [Concomitant]
  6. ESBRIET [Suspect]
     Active Substance: PIRFENIDONE
     Indication: IDIOPATHIC PULMONARY FIBROSIS
     Route: 048
     Dates: start: 20170321
  7. SIMVASTATIN 10MG TAB [Concomitant]
     Active Substance: SIMVASTATIN
  8. ALBUTEROL 2MG TAB [Concomitant]

REACTIONS (1)
  - Pleural effusion [None]

NARRATIVE: CASE EVENT DATE: 20190621
